FAERS Safety Report 19651695 (Version 1)
Quarter: 2021Q3

REPORT INFORMATION
  Report Type: Spontaneous
  Country: US (occurrence: US)
  Receive Date: 20210803
  Receipt Date: 20210803
  Transmission Date: 20211014
  Serious: Yes (Other)
  Sender: FDA-Public Use
  Company Number: US-PFIZER INC-202100954383

PATIENT
  Age: 23 Year
  Sex: Female

DRUGS (3)
  1. CARBAMAZEPINE. [Interacting]
     Active Substance: CARBAMAZEPINE
     Indication: FOCAL DYSCOGNITIVE SEIZURES
     Dosage: 600 MG THE FIRST DAY
  2. CARBAMAZEPINE. [Interacting]
     Active Substance: CARBAMAZEPINE
     Dosage: INCREASED TO 900 MG THE NEXT DAY
  3. ERYTHROMYCIN. [Suspect]
     Active Substance: ERYTHROMYCIN
     Indication: TOOTH ABSCESS
     Dosage: 1600 MG, DAILY

REACTIONS (8)
  - Ataxia [Recovering/Resolving]
  - Dysarthria [Recovering/Resolving]
  - Dizziness [Recovering/Resolving]
  - Nystagmus [Recovering/Resolving]
  - Off label use [Unknown]
  - Drug interaction [Unknown]
  - Drug level increased [Recovering/Resolving]
  - Slow speech [Recovering/Resolving]
